FAERS Safety Report 24867301 (Version 1)
Quarter: 2025Q1

REPORT INFORMATION
  Report Type: Report from Study
  Country: US (occurrence: US)
  Receive Date: 20250121
  Receipt Date: 20250121
  Transmission Date: 20250409
  Serious: Yes (Hospitalization)
  Sender: ROCHE
  Company Number: US-ROCHE-10000179019

PATIENT
  Age: 58 Year
  Sex: Male
  Weight: 99.79 kg

DRUGS (8)
  1. OCREVUS [Suspect]
     Active Substance: OCRELIZUMAB
     Indication: Relapsing multiple sclerosis
     Dosage: LAST INFUSION WAS /SEP/2024. DATE OF TREATMENT: 05/FEB/2024.?STRENGTH: 300 MG/10 ML.
     Route: 042
     Dates: start: 2018
  2. BACLOFEN [Concomitant]
     Active Substance: BACLOFEN
  3. LISINOPRIL [Concomitant]
     Active Substance: LISINOPRIL
  4. MYRBETRIQ [Concomitant]
     Active Substance: MIRABEGRON
  5. SIMVASTATIN [Concomitant]
     Active Substance: SIMVASTATIN
  6. VENLAFAXINE HCL [Concomitant]
     Active Substance: VENLAFAXINE HYDROCHLORIDE
  7. SOLIFENACIN SUCCINATE [Concomitant]
     Active Substance: SOLIFENACIN SUCCINATE
  8. NITROFURANTOIN [Concomitant]
     Active Substance: NITROFURANTOIN

REACTIONS (1)
  - Urinary tract infection [Unknown]

NARRATIVE: CASE EVENT DATE: 20230801
